FAERS Safety Report 6090012-7 (Version None)
Quarter: 2009Q1

REPORT INFORMATION
  Report Type: 
  Country: None (occurrence: None)
  Receive Date: 20090220
  Receipt Date: 20090209
  Transmission Date: 20090719
  Serious: Yes (Hospitalization)
  Sender: FDA-Public Use
  Company Number: 041404

PATIENT
  Age: 65 Year
  Sex: Male

DRUGS (2)
  1. EXTENDED PHENYTOIN SODIUM [Suspect]
  2. THYROID HORMONES [Suspect]
     Indication: HYPOTHYROIDISM

REACTIONS (5)
  - ASTHENIA [None]
  - DRUG INTERACTION [None]
  - HYPOTHYROIDISM [None]
  - MENTAL STATUS CHANGES [None]
  - THERAPEUTIC AGENT TOXICITY [None]
